FAERS Safety Report 13980034 (Version 1)
Quarter: 2017Q3

REPORT INFORMATION
  Report Type: Spontaneous
  Country: US (occurrence: US)
  Receive Date: 20170914
  Receipt Date: 20170914
  Transmission Date: 20171128
  Serious: No
  Sender: FDA-Public Use
  Company Number: US-ASTELLAS-2016US045251

PATIENT
  Age: 82 Year
  Sex: Male

DRUGS (2)
  1. XTANDI [Suspect]
     Active Substance: ENZALUTAMIDE
     Indication: PROSTATE CANCER
     Dosage: 80 MG, ONCE DAILY (40MG, 2 CAPS DAILY)
     Route: 065
  2. XTANDI [Suspect]
     Active Substance: ENZALUTAMIDE
     Dosage: 160 MG, ONCE DAILY (40 MG, 4CAPS, DAILY)
     Route: 065

REACTIONS (6)
  - Dysphagia [Unknown]
  - Gait disturbance [Unknown]
  - Diarrhoea [Unknown]
  - Underdose [Unknown]
  - Eye disorder [Unknown]
  - Dysstasia [Unknown]

NARRATIVE: CASE EVENT DATE: 201611
